FAERS Safety Report 10487768 (Version 1)
Quarter: 2014Q4

REPORT INFORMATION
  Report Type: Spontaneous
  Country: CH (occurrence: CH)
  Receive Date: 20141001
  Receipt Date: 20141001
  Transmission Date: 20150528
  Serious: Yes (Other)
  Sender: FDA-Public Use
  Company Number: CH-OTSUKA-US-2014-13049

PATIENT

DRUGS (4)
  1. BUSULFEX [Suspect]
     Active Substance: BUSULFAN
     Indication: BONE MARROW TRANSPLANT
     Dosage: 8 MG/KG, (TOTAL MYELOABLATIVE BUSULFAN DOSE BASED ON BODYWEIGHT)
     Route: 042
  2. FLUDARABINE [Suspect]
     Active Substance: FLUDARABINE PHOSPHATE
     Indication: IMMUNOSUPPRESSANT DRUG THERAPY
     Dosage: 30 MG/M2, DAILY DOSE FROM D-8 TO D-3
     Route: 042
  3. MYCOPHENOLATE MOFETIL. [Concomitant]
     Active Substance: MYCOPHENOLATE MOFETIL
     Indication: PROPHYLAXIS AGAINST GRAFT VERSUS HOST DISEASE
     Dosage: 1200 MG/M2, BID FROM DAY 0 UNTIL DAY 100
  4. THYMOGLOBULIN [Suspect]
     Active Substance: LAPINE T-LYMPHOCYTE IMMUNE GLOBULIN
     Indication: CHEMOTHERAPY
     Dosage: 2.5 MG/KG, DAILY DOSE ON DAYS -5 TO -3
     Route: 042

REACTIONS (1)
  - Systemic inflammatory response syndrome [Unknown]
